FAERS Safety Report 5270562-3 (Version None)
Quarter: 2007Q1

REPORT INFORMATION
  Report Type: 
  Country: None (occurrence: None)
  Receive Date: 20070315
  Receipt Date: 20070310
  Transmission Date: 20070707
  Serious: Yes (Death)
  Sender: FDA-Public Use
  Company Number: 232958

PATIENT
  Sex: Male

DRUGS (1)
  1. AVASTIN [Suspect]

REACTIONS (1)
  - REVERSIBLE POSTERIOR LEUKOENCEPHALOPATHY SYNDROME [None]
